FAERS Safety Report 13412856 (Version 1)
Quarter: 2017Q2

REPORT INFORMATION
  Report Type: Spontaneous
  Country: IT (occurrence: IT)
  Receive Date: 20170406
  Receipt Date: 20170406
  Transmission Date: 20170830
  Serious: Yes (Other)
  Sender: FDA-Public Use
  Company Number: IT-AUROBINDO-AUR-APL-2017-32020

PATIENT
  Age: 87 Year
  Sex: Male

DRUGS (4)
  1. PIPERACILLINA/TAZOBACTAM [Concomitant]
     Active Substance: PIPERACILLIN SODIUM\TAZOBACTAM SODIUM
     Indication: PNEUMONIA
     Dosage: UNK
     Route: 042
     Dates: start: 20161104, end: 20161109
  2. SINEMET [Concomitant]
     Active Substance: CARBIDOPA\LEVODOPA
     Indication: PARKINSON^S DISEASE
     Dosage: 2.5 DF, UNK
     Route: 048
  3. LEVOFLOXACIN SOLUTION FOR INFUSION [Suspect]
     Active Substance: LEVOFLOXACIN
     Indication: PNEUMONIA
     Dosage: UNK
     Route: 042
     Dates: start: 20161104, end: 20161109
  4. VESSEL                             /00111601/ [Concomitant]
     Indication: PARKINSON^S DISEASE
     Dosage: 2 DF, UNK
     Route: 048

REACTIONS (3)
  - Clonus [Recovered/Resolved]
  - Partial seizures [Recovered/Resolved]
  - Loss of consciousness [Recovered/Resolved]

NARRATIVE: CASE EVENT DATE: 20161109
